FAERS Safety Report 8491149 (Version 3)
Quarter: 2013Q1

REPORT INFORMATION
  Report Type: Spontaneous
  Country: FR (occurrence: FR)
  Receive Date: 20120403
  Receipt Date: 20130109
  Transmission Date: 20140127
  Serious: Yes (Hospitalization)
  Sender: FDA-Public Use
  Company Number: FR-SANOFI-AVENTIS-2012SA020914

PATIENT
  Age: 75 Year
  Sex: Female
  Weight: 68 kg

DRUGS (7)
  1. LOVENOX [Suspect]
     Indication: THROMBOSIS PROPHYLAXIS
     Route: 058
     Dates: start: 20120224, end: 20120302
  2. ZESTRIL [Concomitant]
  3. INEXIUM [Concomitant]
  4. FORLAX [Concomitant]
  5. XANAX [Concomitant]
  6. VASOBRAL [Concomitant]
  7. DAFALGAN [Concomitant]
     Dates: start: 20120210

REACTIONS (2)
  - Cholestasis [Recovered/Resolved]
  - Hepatocellular injury [Recovered/Resolved]
